FAERS Safety Report 13703808 (Version 1)
Quarter: 2017Q2

REPORT INFORMATION
  Report Type: Spontaneous
  Country: US (occurrence: US)
  Receive Date: 20170629
  Receipt Date: 20170629
  Transmission Date: 20170830
  Serious: No
  Sender: FDA-Public Use
  Company Number: US-IPSEN BIOPHARMACEUTICALS, INC.-2015-8220

PATIENT
  Age: 51 Year
  Sex: Female

DRUGS (3)
  1. DYSPORT [Suspect]
     Active Substance: ABOBOTULINUMTOXINA
     Indication: SKIN WRINKLING
     Dosage: 6 UNITS
     Route: 065
     Dates: start: 20151020, end: 20151020
  2. DYSPORT [Suspect]
     Active Substance: ABOBOTULINUMTOXINA
     Indication: SKIN WRINKLING
     Dosage: 60 UNITS
     Route: 065
     Dates: start: 201509, end: 201509
  3. DYSPORT [Suspect]
     Active Substance: ABOBOTULINUMTOXINA
     Indication: PRODUCT USE IN UNAPPROVED INDICATION

REACTIONS (9)
  - Cough [None]
  - Cough [None]
  - Overdose [Unknown]
  - Inappropriate schedule of drug administration [Unknown]
  - Rhinorrhoea [None]
  - Oropharyngeal pain [None]
  - Oropharyngeal pain [None]
  - Rhinorrhoea [None]
  - Increased upper airway secretion [Unknown]

NARRATIVE: CASE EVENT DATE: 201509
